FAERS Safety Report 5224567-9 (Version None)
Quarter: 2007Q1

REPORT INFORMATION
  Report Type: 
  Country: None (occurrence: None)
  Receive Date: 20070126
  Receipt Date: 20070116
  Transmission Date: 20070707
  Serious: Yes (Hospitalization)
  Sender: FDA-Public Use
  Company Number: 2007SP000183

PATIENT
  Age: 42 Year
  Sex: Female
  Weight: 86.1834 kg

DRUGS (18)
  1. LUNESTA [Suspect]
     Indication: INSOMNIA
     Dosage: 3 MG; ORAL
     Route: 048
     Dates: start: 20050601, end: 20060301
  2. LUNESTA [Suspect]
     Indication: INSOMNIA
     Dosage: 3 MG; ORAL
     Route: 048
     Dates: start: 20060101
  3. LITHIUM CARBONATE [Suspect]
     Indication: MANIA
     Dosage: ORAL
     Route: 048
     Dates: start: 20060101, end: 20060101
  4. SEROQUEL [Concomitant]
  5. CYMBALTA [Concomitant]
  6. IBUPROFEN [Concomitant]
  7. OXYCONTIN [Concomitant]
  8. XANAX [Concomitant]
  9. HYDROCODONE W/APAP [Concomitant]
  10. SEASONALE [Concomitant]
  11. INTERFERON BETA-1A /00596808/ [Concomitant]
  12. EFFEXOR XR [Concomitant]
  13. LYRICA [Concomitant]
  14. BETASERON [Concomitant]
  15. FUROSEMIDE [Concomitant]
  16. KLOR-CON [Concomitant]
  17. CITALOPRAM HYDROBROMIDE [Concomitant]
  18. IBUPROFEN [Concomitant]

REACTIONS (11)
  - DEATH OF RELATIVE [None]
  - ENDOSCOPY ABNORMAL [None]
  - FALL [None]
  - FISTULA [None]
  - GASTROINTESTINAL INFECTION [None]
  - INSOMNIA [None]
  - INTESTINAL OBSTRUCTION [None]
  - NASOPHARYNGITIS [None]
  - POSTOPERATIVE ADHESION [None]
  - STRESS [None]
  - WEIGHT INCREASED [None]
